FAERS Safety Report 7223510-0 (Version None)
Quarter: 2011Q1

REPORT INFORMATION
  Report Type: 
  Country: None (occurrence: None)
  Receive Date: 20110112
  Receipt Date: 20100802
  Transmission Date: 20110831
  Serious: No
  Sender: FDA-Public Use
  Company Number: US-ALLERGAN-1010018US

PATIENT
  Age: 69 Year
  Sex: Female

DRUGS (2)
  1. REFRESH TEARS [Concomitant]
     Indication: DRY EYE
     Dosage: UNK GTT; 5/DAY
     Route: 047
     Dates: start: 20100802
  2. RESTASIS [Suspect]
     Indication: DRY EYE
     Dosage: 1 GTT, BID
     Route: 047
     Dates: start: 20050101

REACTIONS (4)
  - EYE PRURITUS [None]
  - OCULAR HYPERAEMIA [None]
  - LACRIMATION INCREASED [None]
  - ABNORMAL SENSATION IN EYE [None]
